FAERS Safety Report 9364653 (Version 1)
Quarter: 2013Q2

REPORT INFORMATION
  Report Type: Spontaneous
  Country: US (occurrence: US)
  Receive Date: 20130624
  Receipt Date: 20130624
  Transmission Date: 20140414
  Serious: Yes (Hospitalization, Other)
  Sender: FDA-Public Use
  Company Number: US-DYAX CORP.-2012DX000154

PATIENT
  Age: 16 Year
  Sex: Female
  Weight: 59.02 kg

DRUGS (7)
  1. KALBITOR [Suspect]
     Indication: HEREDITARY ANGIOEDEMA
     Route: 058
     Dates: start: 20120202, end: 20120202
  2. KALBITOR [Suspect]
     Route: 058
     Dates: start: 20120217, end: 20120217
  3. KALBITOR [Suspect]
     Route: 058
     Dates: start: 20120713, end: 20120713
  4. KALBITOR [Suspect]
     Route: 058
     Dates: start: 20120713, end: 20120713
  5. KALBITOR [Suspect]
     Route: 058
     Dates: start: 20120817, end: 20120817
  6. CITALOPRAM [Concomitant]
     Indication: DEPRESSION
     Dates: start: 201203
  7. CINRYZE [Concomitant]
     Indication: HEREDITARY ANGIOEDEMA
     Route: 042
     Dates: start: 20120726

REACTIONS (7)
  - Syncope [Recovered/Resolved]
  - Hypersensitivity [Recovered/Resolved]
  - Hereditary angioedema [Recovered/Resolved]
  - Fall [Recovered/Resolved]
  - Rash [Recovered/Resolved]
  - Panic attack [Recovered/Resolved]
  - Heart rate decreased [Recovered/Resolved]
